FAERS Safety Report 20356951 (Version 1)
Quarter: 2022Q1

REPORT INFORMATION
  Report Type: Spontaneous
  Country: US (occurrence: US)
  Receive Date: 20220120
  Receipt Date: 20220120
  Transmission Date: 20220423
  Serious: No
  Sender: FDA-Public Use
  Company Number: US-SA-SAC20220118000447

PATIENT
  Age: 15 Year
  Sex: Female

DRUGS (1)
  1. DUPIXENT [Suspect]
     Active Substance: DUPILUMAB
     Dosage: 1.14 ML, FREQUENCY: OTHER
     Route: 058
     Dates: start: 202201

REACTIONS (3)
  - Joint stiffness [Unknown]
  - Platelet count decreased [Unknown]
  - Rash [Unknown]

NARRATIVE: CASE EVENT DATE: 20220112
